FAERS Safety Report 9831744 (Version 2)
Quarter: 2014Q1

REPORT INFORMATION
  Report Type: Spontaneous
  Country: US (occurrence: US)
  Receive Date: 20140121
  Receipt Date: 20140205
  Transmission Date: 20141002
  Serious: No
  Sender: FDA-Public Use
  Company Number: US-PFIZER INC-2014014119

PATIENT
  Age: 79 Year
  Sex: Male

DRUGS (12)
  1. SUTENT [Suspect]
     Indication: RENAL CANCER
     Dosage: 12.5 MG AND 25 MG
     Dates: start: 20140113
  2. ADVAIR HFA [Concomitant]
     Dosage: UNK
  3. ALLOPURINOL [Concomitant]
     Dosage: UNK
  4. BISOPROLOL FUMARATE [Concomitant]
     Dosage: UNK
  5. FUROSEMIDE [Concomitant]
     Dosage: UNK
  6. KLOR-CON [Concomitant]
     Dosage: UNK
  7. PLAVIX [Concomitant]
     Dosage: UNK
  8. SINGULAIR [Concomitant]
  9. SPRIVIA HANDIHALER [Concomitant]
  10. VENTOLIN HFA [Concomitant]
  11. VITAMIN B12 [Concomitant]
  12. VITAMIN C [Concomitant]

REACTIONS (3)
  - Stomatitis [Unknown]
  - Palmar-plantar erythrodysaesthesia syndrome [Unknown]
  - Bronchitis [Unknown]
